FAERS Safety Report 4653178-9 (Version None)
Quarter: 2005Q2

REPORT INFORMATION
  Report Type: 
  Country: None (occurrence: None)
  Receive Date: 20050503
  Receipt Date: 20050418
  Transmission Date: 20051028
  Serious: Yes (Other)
  Sender: FDA-Public Use
  Company Number: 2005061416

PATIENT
  Age: 35 Year
  Sex: Female
  Weight: 47.4009 kg

DRUGS (4)
  1. BEXTRA [Suspect]
     Indication: RHEUMATOID ARTHRITIS
     Dosage: 10 M G (10 MG, 1 IN 1 D), ORAL
     Route: 048
     Dates: end: 20050101
  2. METHOTREXATE [Suspect]
     Indication: RHEUMATOID ARTHRITIS
     Dates: end: 20050101
  3. INFLIXIMAB (INFLIXIMAB) [Suspect]
     Indication: RHEUMATOID ARTHRITIS
     Dates: end: 20050101
  4. PROPACET 100 [Concomitant]

REACTIONS (12)
  - ALOPECIA [None]
  - ANAEMIA [None]
  - BLISTER [None]
  - BURNING SENSATION [None]
  - CARDIAC MURMUR [None]
  - DRUG HYPERSENSITIVITY [None]
  - DRUG INEFFECTIVE [None]
  - MENORRHAGIA [None]
  - OPTIC NEURITIS [None]
  - PURULENCE [None]
  - RASH PRURITIC [None]
  - SKIN EXFOLIATION [None]
